FAERS Safety Report 14359056 (Version 2)
Quarter: 2018Q1

REPORT INFORMATION
  Report Type: Report from Study
  Country: US (occurrence: US)
  Receive Date: 20180105
  Receipt Date: 20180105
  Transmission Date: 20180509
  Serious: No
  Sender: FDA-Public Use
  Company Number: US-AMGEN-USASL2016091054

PATIENT
  Age: 63 Year
  Sex: Female

DRUGS (1)
  1. REPATHA [Suspect]
     Active Substance: EVOLOCUMAB
     Indication: PRODUCT USED FOR UNKNOWN INDICATION
     Dosage: 140 MG, Q2WK
     Route: 065
     Dates: start: 20151026

REACTIONS (9)
  - Pain [Not Recovered/Not Resolved]
  - Weight increased [Unknown]
  - Injection site urticaria [Unknown]
  - Injection site swelling [Unknown]
  - Upper-airway cough syndrome [Unknown]
  - Injection site warmth [Unknown]
  - Injection site erythema [Unknown]
  - Urinary tract infection [Unknown]
  - Impaired work ability [Unknown]
